FAERS Safety Report 18507551 (Version 1)
Quarter: 2020Q4

REPORT INFORMATION
  Report Type: Spontaneous
  Country: UA (occurrence: UA)
  Receive Date: 20201116
  Receipt Date: 20201116
  Transmission Date: 20210114
  Serious: Yes (Hospitalization)
  Sender: FDA-Public Use
  Company Number: UA-SA-2020SA324015

PATIENT

DRUGS (6)
  1. OMNIC [Suspect]
     Active Substance: TAMSULOSIN HYDROCHLORIDE
     Indication: BENIGN PROSTATIC HYPERPLASIA
     Dosage: 0.4 MG, QD
     Route: 048
     Dates: end: 202008
  2. NOLIPREL [INDAPAMIDE;PERINDOPRIL ARGININE] [Concomitant]
     Dosage: UNK
  3. OMNIC [Suspect]
     Active Substance: TAMSULOSIN HYDROCHLORIDE
     Dosage: 0.4 MG, BID
     Route: 048
     Dates: start: 202008, end: 20201013
  4. OMNIC [Suspect]
     Active Substance: TAMSULOSIN HYDROCHLORIDE
     Dosage: 0.4 MG, QD
     Route: 048
     Dates: start: 20201014
  5. CONCOR [Concomitant]
     Active Substance: BISOPROLOL FUMARATE
     Dosage: UNK
  6. CARDIOMAGNYL [ACETYLSALICYLIC ACID;MAGNESIUM HYDROXIDE] [Concomitant]
     Dosage: UNK

REACTIONS (3)
  - Haematuria [Recovered/Resolved]
  - Inappropriate schedule of product administration [Unknown]
  - Overdose [Unknown]

NARRATIVE: CASE EVENT DATE: 20201012
